FAERS Safety Report 5595573-X (Version None)
Quarter: 2008Q1

REPORT INFORMATION
  Report Type: 
  Country: None (occurrence: None)
  Receive Date: 20080118
  Receipt Date: 20080114
  Transmission Date: 20080703
  Serious: Yes (Death, Hospitalization)
  Sender: FDA-Public Use
  Company Number: FR-AVENTIS-200810158FR

PATIENT
  Age: 86 Year
  Sex: Female

DRUGS (11)
  1. TARGOCID [Suspect]
     Route: 042
     Dates: start: 20070720, end: 20071019
  2. TARGOCID [Suspect]
     Indication: ENDOCARDITIS
     Route: 042
     Dates: start: 20070720, end: 20071019
  3. TAVANIC [Suspect]
     Route: 048
     Dates: start: 20070717, end: 20071019
  4. TAVANIC [Suspect]
     Indication: ENDOCARDITIS
     Route: 048
     Dates: start: 20070717, end: 20071019
  5. DI-ANTALVIC                        /00220901/ [Suspect]
     Indication: DRUG USE FOR UNKNOWN INDICATION
     Route: 048
     Dates: start: 20071003, end: 20071020
  6. LASILIX                            /00032601/ [Suspect]
     Indication: DRUG USE FOR UNKNOWN INDICATION
     Route: 048
     Dates: start: 20070920, end: 20071020
  7. INIPOMP                            /01263201/ [Suspect]
     Indication: DRUG USE FOR UNKNOWN INDICATION
     Route: 048
     Dates: start: 20070911, end: 20071020
  8. ZOLOFT [Suspect]
     Indication: DRUG USE FOR UNKNOWN INDICATION
     Route: 048
     Dates: end: 20071019
  9. BISOPROLOL FUMARATE [Concomitant]
     Indication: DRUG USE FOR UNKNOWN INDICATION
     Route: 048
  10. DIGOXIN [Concomitant]
     Indication: DRUG USE FOR UNKNOWN INDICATION
     Route: 048
  11. PREVISCAN                          /00789001/ [Concomitant]
     Indication: DRUG USE FOR UNKNOWN INDICATION
     Route: 048

REACTIONS (2)
  - FEBRILE NEUTROPENIA [None]
  - PANCYTOPENIA [None]
